FAERS Safety Report 24313991 (Version 1)
Quarter: 2024Q3

REPORT INFORMATION
  Report Type: Other
  Country: US (occurrence: US)
  Receive Date: 20240912
  Receipt Date: 20240912
  Transmission Date: 20241017
  Serious: No
  Sender: SIGMA TAU
  Company Number: US-LEADIANT BIOSCIENCES, INC.-2024LBI000140

PATIENT
  Sex: Male

DRUGS (2)
  1. MATULANE [Suspect]
     Active Substance: PROCARBAZINE HYDROCHLORIDE
     Indication: Brain neoplasm malignant
     Dosage: 50 MILLIGRAMS, 1 CAPSULE (50MG TOTAL) EVERY 6 HOURS ON DAY 1 EVERY 28 DAY CYCLE
     Route: 048
     Dates: start: 20240520
  2. GLEOSTINE [Suspect]
     Active Substance: LOMUSTINE

REACTIONS (1)
  - Platelet count decreased [Unknown]
